FAERS Safety Report 9342412 (Version 3)
Quarter: 2013Q2

REPORT INFORMATION
  Report Type: Report from Study
  Country: US (occurrence: US)
  Receive Date: 20130611
  Receipt Date: 20130621
  Transmission Date: 20140414
  Serious: Yes (Death, Hospitalization)
  Sender: FDA-Public Use
  Company Number: US-009507513-1306USA003967

PATIENT
  Age: 57 Year
  Sex: Female
  Weight: 59.9 kg

DRUGS (6)
  1. VORINOSTAT [Suspect]
     Indication: DIFFUSE LARGE B-CELL LYMPHOMA
     Dosage: 400 MG, QD ON DAYS 1-5
     Route: 048
     Dates: start: 20130530, end: 20130603
  2. RITUXIMAB [Suspect]
     Indication: DIFFUSE LARGE B-CELL LYMPHOMA
     Dosage: 375 MG/M2 IV INFUSION ON DAY 3
     Route: 042
     Dates: start: 20130601, end: 20130601
  3. CYCLOPHOSPHAMIDE [Suspect]
     Indication: DIFFUSE LARGE B-CELL LYMPHOMA
     Dosage: 750 MG/M2 IV OVER 30-60 MINUTES ON DAY 3
     Route: 042
     Dates: start: 20130601, end: 20130601
  4. DOXORUBICIN [Suspect]
     Indication: DIFFUSE LARGE B-CELL LYMPHOMA
     Dosage: 50 MG/M2 IVP ON DAY 3
     Route: 042
     Dates: start: 20130601
  5. VINCRISTINE [Suspect]
     Indication: DIFFUSE LARGE B-CELL LYMPHOMA
     Dosage: 1.4 MG/M2 IVP ON DAY 3
     Route: 042
     Dates: start: 20130601, end: 20130601
  6. PREDNISONE [Suspect]
     Indication: DIFFUSE LARGE B-CELL LYMPHOMA
     Dosage: 100 MG PO QD ON DAYS 3-7
     Route: 048
     Dates: start: 20130601, end: 20130605

REACTIONS (2)
  - Rhabdomyolysis [Fatal]
  - Cardiac arrest [Fatal]
